FAERS Safety Report 8821341 (Version 1)
Quarter: 2012Q4

REPORT INFORMATION
  Report Type: 
  Country: IT (occurrence: IT)
  Receive Date: 20121002
  Receipt Date: 20121002
  Transmission Date: 20130627
  Serious: Yes (Hospitalization)
  Sender: FDA-Public Use
  Company Number: IT-TEVA-360673ISR

PATIENT
  Age: 61 Year
  Sex: Female

DRUGS (4)
  1. EPIRUBICINA [Suspect]
     Indication: BREAST CANCER STAGE IV
     Dosage: 157 Milligram Daily; 157 mg/cyclic
     Route: 042
     Dates: start: 20120827, end: 20120827
  2. DOCETAXEL [Suspect]
     Indication: BREAST CANCER STAGE IV
     Dosage: 129 Milligram Daily; 129 mg/cyclic
     Route: 042
     Dates: start: 20120827, end: 20120827
  3. EMEND [Concomitant]
     Dosage: 1 dosage unit
  4. SOLDESAM [Concomitant]

REACTIONS (4)
  - Atrial fibrillation [Recovering/Resolving]
  - Diarrhoea [Recovering/Resolving]
  - Leukopenia [Recovering/Resolving]
  - Pneumonitis [Recovering/Resolving]
